FAERS Safety Report 5402613-7 (Version None)
Quarter: 2007Q3

REPORT INFORMATION
  Report Type: 
  Country: None (occurrence: None)
  Receive Date: 20070801
  Receipt Date: 20070223
  Transmission Date: 20080115
  Serious: No
  Sender: FDA-Public Use
  Company Number: A0641033A

PATIENT
  Sex: Female

DRUGS (1)
  1. IMITREX [Suspect]
     Indication: MIGRAINE
     Dosage: 1TAB SINGLE DOSE
     Route: 048

REACTIONS (3)
  - HEADACHE [None]
  - HYPERSENSITIVITY [None]
  - PAIN [None]
